FAERS Safety Report 10520487 (Version 2)
Quarter: 2014Q4

REPORT INFORMATION
  Report Type: Report from Study
  Country: BE (occurrence: BE)
  Receive Date: 20141015
  Receipt Date: 20141209
  Transmission Date: 20150528
  Serious: Yes (Hospitalization)
  Sender: FDA-Public Use
  Company Number: BE-ASTRAZENECA-2014SE75650

PATIENT
  Age: 24292 Day
  Sex: Male

DRUGS (10)
  1. ASPIRIN (NON-AZ PRODUCT) [Suspect]
     Active Substance: ASPIRIN
     Indication: ACUTE CORONARY SYNDROME
     Dosage: MAINTANENCE THERAPY - 80 MG DAILY
     Route: 048
     Dates: start: 20130924, end: 20131025
  2. TICAGRELOR [Suspect]
     Active Substance: TICAGRELOR
     Indication: ACUTE CORONARY SYNDROME
     Route: 048
     Dates: start: 20130924
  3. ASPIRIN (NON-AZ PRODUCT) [Suspect]
     Active Substance: ASPIRIN
     Indication: ACUTE CORONARY SYNDROME
     Dosage: MAINTANENCE THERAPY - 80 MG DAILY
     Route: 048
     Dates: start: 20140407
  4. COMBODART [Concomitant]
     Active Substance: DUTASTERIDE\TAMSULOSIN
     Indication: BENIGN PROSTATIC HYPERPLASIA
     Dosage: 0.5/0.4 MG PER DAY
     Route: 048
     Dates: start: 20121123
  5. PANTOMED [Concomitant]
     Active Substance: DEXPANTHENOL
     Indication: GASTRIC ULCER
     Route: 048
     Dates: start: 20120420
  6. AMIODARONE [Concomitant]
     Active Substance: AMIODARONE
     Indication: ATRIAL FIBRILLATION
     Route: 048
     Dates: start: 20120420
  7. LOORTAN [Concomitant]
     Indication: HYPERTENSION
     Route: 048
     Dates: start: 20120420
  8. CONTRAMAL RETARD [Concomitant]
  9. LIPITOR [Concomitant]
     Active Substance: ATORVASTATIN CALCIUM
     Indication: HYPERCHOLESTEROLAEMIA
     Route: 048
     Dates: start: 20121123
  10. ALDACTONE [Concomitant]
     Active Substance: SPIRONOLACTONE
     Indication: DIURETIC THERAPY
     Route: 048
     Dates: start: 20121123

REACTIONS (2)
  - Haemarthrosis [Recovered/Resolved with Sequelae]
  - Haemoglobin decreased [Recovering/Resolving]

NARRATIVE: CASE EVENT DATE: 20140419
